FAERS Safety Report 9831206 (Version 1)
Quarter: 2014Q1

REPORT INFORMATION
  Report Type: Spontaneous
  Country: US (occurrence: US)
  Receive Date: 20140121
  Receipt Date: 20140121
  Transmission Date: 20141002
  Serious: No
  Sender: FDA-Public Use
  Company Number: US-009507513-1401USA005915

PATIENT
  Age: 53 Year
  Sex: Male

DRUGS (3)
  1. REMERON [Suspect]
     Indication: DEPRESSION
     Dosage: 15 MG, TAKEN ONCE DAILY
     Route: 048
     Dates: start: 201312
  2. REMERON [Suspect]
     Indication: ANXIETY
  3. REMERON [Suspect]
     Indication: SLEEP DISORDER

REACTIONS (10)
  - Musculoskeletal stiffness [Not Recovered/Not Resolved]
  - Palpitations [Not Recovered/Not Resolved]
  - Suicidal ideation [Not Recovered/Not Resolved]
  - Agitation [Not Recovered/Not Resolved]
  - Coordination abnormal [Not Recovered/Not Resolved]
  - Decreased appetite [Not Recovered/Not Resolved]
  - Anxiety [Not Recovered/Not Resolved]
  - Abdominal distension [Not Recovered/Not Resolved]
  - Insomnia [Not Recovered/Not Resolved]
  - Tremor [Not Recovered/Not Resolved]
